FAERS Safety Report 15042211 (Version 3)
Quarter: 2018Q3

REPORT INFORMATION
  Report Type: Spontaneous
  Country: US (occurrence: US)
  Receive Date: 20180621
  Receipt Date: 20180919
  Transmission Date: 20181010
  Serious: No
  Sender: FDA-Public Use
  Company Number: US-PFIZER INC-2018251174

PATIENT
  Sex: Female

DRUGS (4)
  1. CAMPTOSAR [Suspect]
     Active Substance: IRINOTECAN HYDROCHLORIDE
     Indication: PANCREATIC DISORDER
     Dosage: 385.2 MG, UNK
     Dates: start: 20180514
  2. CAMPTOSAR [Suspect]
     Active Substance: IRINOTECAN HYDROCHLORIDE
     Dosage: 231 MG, UNK
     Dates: start: 20180530
  3. CAMPTOSAR [Suspect]
     Active Substance: IRINOTECAN HYDROCHLORIDE
     Dosage: 264.4 MG, CYCLIC (Q 2 WEEKS)
     Route: 042
     Dates: start: 20180514, end: 20180808
  4. OXALIPLATIN. [Suspect]
     Active Substance: OXALIPLATIN
     Indication: PANCREATIC DISORDER
     Dosage: 166.6 MG, CYCLIC (Q 2 WEEKS)
     Route: 042
     Dates: start: 20180514, end: 20180808

REACTIONS (4)
  - Speech disorder [Unknown]
  - Dysphagia [Recovered/Resolved]
  - Product use in unapproved indication [Unknown]
  - Swollen tongue [Recovered/Resolved]

NARRATIVE: CASE EVENT DATE: 20180514
